FAERS Safety Report 14075551 (Version 1)
Quarter: 2017Q4

REPORT INFORMATION
  Report Type: Spontaneous
  Country: US (occurrence: US)
  Receive Date: 20171010
  Receipt Date: 20171010
  Transmission Date: 20180321
  Serious: No
  Sender: FDA-Public Use
  Company Number: US-MYLANLABS-2016M1054408

PATIENT
  Age: 36 Year
  Sex: Male
  Weight: 99.77 kg

DRUGS (4)
  1. FLUVOXAMINE MALEATE TABLETS, USP [Suspect]
     Active Substance: FLUVOXAMINE MALEATE
     Indication: OBSESSIVE-COMPULSIVE DISORDER
     Dosage: 50 MG, BID
     Route: 048
     Dates: end: 20161123
  2. FLUVOXAMINE MALEATE TABLETS, USP [Suspect]
     Active Substance: FLUVOXAMINE MALEATE
     Indication: OBSESSIVE-COMPULSIVE DISORDER
     Dosage: 100 MG, BID
     Route: 048
     Dates: end: 20161123
  3. FLUVOXAMINE MALEATE TABLETS, USP [Suspect]
     Active Substance: FLUVOXAMINE MALEATE
     Dosage: 50 MG, BID
     Dates: start: 20161205
  4. FLUVOXAMINE MALEATE TABLETS, USP [Suspect]
     Active Substance: FLUVOXAMINE MALEATE
     Dosage: 100 MG, BID
     Route: 048
     Dates: start: 20161205

REACTIONS (1)
  - Drug withdrawal syndrome [Not Recovered/Not Resolved]

NARRATIVE: CASE EVENT DATE: 20161130
